FAERS Safety Report 6894135-1 (Version None)
Quarter: 2010Q3

REPORT INFORMATION
  Report Type: 
  Country: None (occurrence: None)
  Receive Date: 20100802
  Receipt Date: 20100723
  Transmission Date: 20110219
  Serious: Yes (Hospitalization)
  Sender: FDA-Public Use
  Company Number: ES-JNJFOC-20100708696

PATIENT
  Age: 62 Year
  Sex: Female

DRUGS (6)
  1. LEVOFLOXACIN [Suspect]
     Indication: RESPIRATORY TRACT INFECTION
     Route: 048
  2. IBUPROFEN [Suspect]
     Indication: RESPIRATORY TRACT INFECTION
     Route: 048
  3. CHLORPHENIRAMINE MALEATE [Suspect]
     Indication: RESPIRATORY TRACT INFECTION
     Dosage: 1 DOSAGE FORM
     Route: 048
  4. FLUTICASONE PROPIONATE W/SALMETEROL XINAFOATE [Concomitant]
     Dosage: 1 DOSAGE FORM
     Route: 065
  5. SPIRIVA [Concomitant]
     Dosage: 1 DOSAGE FORM
     Route: 065
  6. VENTOLIN [Concomitant]
     Dosage: 1 DOSAGE FORM
     Route: 065

REACTIONS (1)
  - BRONCHOSPASM [None]
